FAERS Safety Report 25760147 (Version 3)
Quarter: 2025Q4

REPORT INFORMATION
  Report Type: Spontaneous
  Country: US (occurrence: US)
  Receive Date: 20250904
  Receipt Date: 20251008
  Transmission Date: 20260117
  Serious: Yes (Death, Other)
  Sender: ALVOGEN
  Company Number: US-ALVOGEN-2025098652

PATIENT
  Sex: Male

DRUGS (1)
  1. LENALIDOMIDE [Suspect]
     Active Substance: LENALIDOMIDE
     Indication: Plasma cell myeloma
     Dates: end: 2025

REACTIONS (5)
  - Hyperkalaemia [Fatal]
  - Hip fracture [Unknown]
  - Fall [Unknown]
  - Malaise [Unknown]
  - Off label use [Unknown]
